FAERS Safety Report 17395248 (Version 2)
Quarter: 2020Q1

REPORT INFORMATION
  Report Type: Spontaneous
  Country: JP (occurrence: JP)
  Receive Date: 20200210
  Receipt Date: 20200311
  Transmission Date: 20200409
  Serious: Yes (Hospitalization)
  Sender: FDA-Public Use
  Company Number: JP-ELI_LILLY_AND_COMPANY-JP202002001378

PATIENT
  Age: 71 Year
  Sex: Male

DRUGS (3)
  1. INSULIN GLARGINE [Concomitant]
     Active Substance: INSULIN GLARGINE
     Dosage: UNK
  2. TRULICITY [Suspect]
     Active Substance: DULAGLUTIDE
     Indication: DIABETES MELLITUS
     Route: 058
  3. TRAZENTA [Concomitant]
     Active Substance: LINAGLIPTIN

REACTIONS (4)
  - Nausea [Unknown]
  - Cardiac failure [Recovered/Resolved]
  - Blood pressure increased [Unknown]
  - Diabetes mellitus inadequate control [Unknown]
